FAERS Safety Report 25929996 (Version 1)
Quarter: 2025Q4

REPORT INFORMATION
  Report Type: Spontaneous
  Country: EU (occurrence: EU)
  Receive Date: 20251016
  Receipt Date: 20251016
  Transmission Date: 20260118
  Serious: Yes (Death)
  Sender: TEVA
  Company Number: None

PATIENT
  Age: 87 Year
  Sex: Male

DRUGS (2)
  1. IBUPROFEN [Suspect]
     Active Substance: IBUPROFEN
     Indication: Knee operation
     Dosage: 400 MG X3/DAY
     Route: 048
     Dates: start: 20241019, end: 20241020
  2. KETOPROFEN [Suspect]
     Active Substance: KETOPROFEN
     Indication: Knee operation
     Route: 042
     Dates: start: 20241018, end: 20241018

REACTIONS (1)
  - Peptic ulcer perforation [Fatal]

NARRATIVE: CASE EVENT DATE: 20241020
